FAERS Safety Report 21568734 (Version 1)
Quarter: 2022Q4

REPORT INFORMATION
  Report Type: Spontaneous
  Country: US (occurrence: None)
  Receive Date: 20221107
  Receipt Date: 20221107
  Transmission Date: 20230112
  Serious: Yes (Hospitalization)
  Sender: FDA-Public Use
  Company Number: None

PATIENT
  Sex: Female

DRUGS (1)
  1. MAVYRET [Suspect]
     Active Substance: GLECAPREVIR\PIBRENTASVIR
     Indication: Chronic hepatitis C
     Dosage: OTHER QUANTITY : 300-120 MG;?FREQUENCY : DAILY;?
     Route: 048
     Dates: start: 202210

REACTIONS (2)
  - Therapy interrupted [None]
  - Transplant [None]
